FAERS Safety Report 5516826-7 (Version None)
Quarter: 2007Q4

REPORT INFORMATION
  Report Type: 
  Country: None (occurrence: None)
  Receive Date: 20071114
  Receipt Date: 20071109
  Transmission Date: 20080405
  Serious: Yes (Other)
  Sender: FDA-Public Use
  Company Number: US-AVENTIS-200717928US

PATIENT
  Sex: Male

DRUGS (1)
  1. KETEK [Suspect]
     Indication: INFECTION
     Dosage: DOSE: UNK
     Dates: start: 20060925

REACTIONS (3)
  - HEPATIC FAILURE [None]
  - HEPATITIS [None]
  - LIVER INJURY [None]
